FAERS Safety Report 5695801-6 (Version None)
Quarter: 2008Q2

REPORT INFORMATION
  Report Type: 
  Country: None (occurrence: None)
  Receive Date: 20080407
  Receipt Date: 20080327
  Transmission Date: 20081010
  Serious: Yes (Other)
  Sender: FDA-Public Use
  Company Number: US-ROCHE-555650

PATIENT
  Age: 49 Year
  Sex: Female

DRUGS (1)
  1. CLONAZEPAM [Suspect]
     Indication: ANXIETY
     Route: 065
     Dates: start: 19980101

REACTIONS (2)
  - FEELING ABNORMAL [None]
  - NARCOLEPSY [None]
